FAERS Safety Report 7059715-1 (Version None)
Quarter: 2010Q4

REPORT INFORMATION
  Report Type: 
  Country: None (occurrence: None)
  Receive Date: 20101025
  Receipt Date: 20101014
  Transmission Date: 20110411
  Serious: Yes (Hospitalization)
  Sender: FDA-Public Use
  Company Number: GR-JNJFOC-20100905787

PATIENT
  Age: 62 Year
  Sex: Male
  Weight: 65 kg

DRUGS (3)
  1. INFLIXIMAB, RECOMBINANT [Suspect]
     Indication: COLITIS ULCERATIVE
     Route: 042
     Dates: start: 20100805
  2. SULFASALAZINE [Concomitant]
     Indication: COLITIS ULCERATIVE
  3. AZATHIOPRINE [Concomitant]
     Indication: COLITIS ULCERATIVE

REACTIONS (7)
  - BLOOD MAGNESIUM DECREASED [None]
  - CEREBRAL ARTERIOSCLEROSIS [None]
  - CEREBRAL ISCHAEMIA [None]
  - ERYTHEMA [None]
  - MENTAL STATUS CHANGES [None]
  - PYREXIA [None]
  - TREMOR [None]
